FAERS Safety Report 6772460-2 (Version None)
Quarter: 2010Q2

REPORT INFORMATION
  Report Type: 
  Country: None (occurrence: None)
  Receive Date: 20100616
  Receipt Date: 20090609
  Transmission Date: 20101027
  Serious: No
  Sender: FDA-Public Use
  Company Number: US-ASTRAZENECA-2009UW14804

PATIENT
  Age: 56 Year
  Sex: Female
  Weight: 103.4 kg

DRUGS (24)
  1. PULMICORT [Suspect]
     Route: 055
  2. NEXIUM [Suspect]
     Route: 048
  3. SINGULAIR [Concomitant]
  4. ALLOPURINOL [Concomitant]
  5. GLIMIPERIDE [Concomitant]
  6. METFORMIN [Concomitant]
  7. HYDROCODONE BITARTRATE [Concomitant]
  8. METOPROLOL [Concomitant]
  9. ZETIA [Concomitant]
  10. COLCHINE [Concomitant]
  11. PREDNISONE [Concomitant]
  12. CYCLOBENZAPRINE [Concomitant]
  13. ACYCLOVIR [Concomitant]
  14. LISINOPRIL [Concomitant]
  15. VITAMIN D [Concomitant]
  16. FURPSEMIDE [Concomitant]
  17. AMLODIPINE [Concomitant]
  18. SKELAXAN [Concomitant]
  19. PROMETHIZINE [Concomitant]
  20. OCCUVITE [Concomitant]
  21. FISH OIL [Concomitant]
  22. ASPIRIN [Concomitant]
  23. VOLTAREN [Concomitant]
  24. CINNAMON PILLS [Concomitant]

REACTIONS (1)
  - COSTOCHONDRITIS [None]
